FAERS Safety Report 8177815-X (Version None)
Quarter: 2012Q1

REPORT INFORMATION
  Report Type: 
  Country: None (occurrence: None)
  Receive Date: 20120301
  Receipt Date: 20120215
  Transmission Date: 20120608
  Serious: Yes (Hospitalization, Other)
  Sender: FDA-Public Use
  Company Number: US-ROCHE-1025356

PATIENT
  Sex: Female

DRUGS (5)
  1. LIDOCAINE [Concomitant]
     Indication: BACK PAIN
     Dosage: 5% PATCH
     Route: 062
     Dates: start: 20110823
  2. IBUPROFEN [Concomitant]
     Indication: BACK PAIN
     Route: 042
     Dates: start: 20111004
  3. LEVOTHYROXINE SODIUM [Concomitant]
     Indication: HYPOTHYROIDISM
     Route: 048
     Dates: start: 20060829, end: 20111202
  4. OXYCODONE HCL [Concomitant]
     Indication: ARTHRALGIA
     Route: 048
     Dates: start: 20110728, end: 20111019
  5. VEMURAFENIB [Suspect]
     Indication: THYROID CANCER
     Dosage: LAST DOSE PRIOR TO SAE: 27 DEC 2011
     Dates: start: 20111007, end: 20111228

REACTIONS (7)
  - WEIGHT DECREASED [None]
  - BONE PAIN [None]
  - NAUSEA [None]
  - ARTHRALGIA [None]
  - HYPERTHYROIDISM [None]
  - PATHOLOGICAL FRACTURE [None]
  - FATIGUE [None]
